FAERS Safety Report 23640122 (Version 1)
Quarter: 2024Q1

REPORT INFORMATION
  Report Type: Spontaneous
  Country: GB (occurrence: GB)
  Receive Date: 20240317
  Receipt Date: 20240317
  Transmission Date: 20240409
  Serious: Yes (Other)
  Sender: FDA-Public Use
  Company Number: None

PATIENT
  Sex: Female

DRUGS (1)
  1. SIMVASTATIN [Suspect]
     Active Substance: SIMVASTATIN
     Indication: Adverse drug reaction
     Dosage: 20MG ON; ;

REACTIONS (1)
  - Circulatory collapse [Recovered/Resolved]

NARRATIVE: CASE EVENT DATE: 20240221
